FAERS Safety Report 25469265 (Version 9)
Quarter: 2025Q3

REPORT INFORMATION
  Report Type: Spontaneous
  Country: GB (occurrence: GB)
  Receive Date: 20250623
  Receipt Date: 20250904
  Transmission Date: 20251020
  Serious: Yes (Hospitalization, Other)
  Sender: EXELIXIS
  Company Number: GB-IPSEN Group, Research and Development-2025-13741

PATIENT
  Age: 60 Year
  Sex: Male

DRUGS (3)
  1. CABOMETYX [Suspect]
     Active Substance: CABOZANTINIB S-MALATE
     Indication: Clear cell renal cell carcinoma
     Dates: start: 202406
  2. CABOMETYX [Suspect]
     Active Substance: CABOZANTINIB S-MALATE
     Dosage: 40 MG, QD
  3. NIVOLUMAB [Suspect]
     Active Substance: NIVOLUMAB
     Indication: Clear cell renal cell carcinoma

REACTIONS (10)
  - Hepatitis [Unknown]
  - Myositis [Unknown]
  - Mobility decreased [Unknown]
  - Hypoaesthesia [Unknown]
  - Lumbar radiculopathy [Unknown]
  - Spinal stenosis [Unknown]
  - Diarrhoea [Unknown]
  - Colitis [Unknown]
  - Headache [Unknown]
  - Pain [Unknown]
